FAERS Safety Report 8924475 (Version 1)
Quarter: 2012Q4

REPORT INFORMATION
  Report Type: 
  Country: IT (occurrence: IT)
  Receive Date: 20121126
  Receipt Date: 20121126
  Transmission Date: 20130627
  Serious: Yes (Other)
  Sender: FDA-Public Use
  Company Number: IT-MYLANLABS-2012S1023497

PATIENT
  Age: 72 Year
  Sex: Male

DRUGS (1)
  1. TERAZOSIN [Suspect]
     Indication: BENIGN PROSTATIC HYPERPLASIA
     Route: 048
     Dates: start: 20121001, end: 20121030

REACTIONS (3)
  - Dysuria [Recovered/Resolved]
  - Nocturia [Recovered/Resolved]
  - Product substitution issue [Recovered/Resolved]
